FAERS Safety Report 5203541-2 (Version None)
Quarter: 2007Q1

REPORT INFORMATION
  Report Type: 
  Country: None (occurrence: None)
  Receive Date: 20070105
  Receipt Date: 20061227
  Transmission Date: 20070707
  Serious: Yes (Hospitalization, Disabling)
  Sender: FDA-Public Use
  Company Number: 2006SP007531

PATIENT
  Age: 56 Year
  Sex: Female

DRUGS (6)
  1. PEG-INTRON [Suspect]
     Indication: HEPATITIS C
     Dosage: 30 MCG;QW;SC;40 MCG;QW;SC;50 MCG;QW;SC
     Route: 058
     Dates: start: 20060627, end: 20060726
  2. PEG-INTRON [Suspect]
     Indication: HEPATITIS C
     Dosage: 30 MCG;QW;SC;40 MCG;QW;SC;50 MCG;QW;SC
     Route: 058
     Dates: start: 20060516
  3. PEG-INTRON [Suspect]
     Indication: HEPATITIS C
     Dosage: 30 MCG;QW;SC;40 MCG;QW;SC;50 MCG;QW;SC
     Route: 058
     Dates: start: 20060620
  4. REBETOL [Suspect]
     Indication: HEPATITIS C
     Dosage: 600 MG;QD;PO; 400 MG;QD;PO; 200 MG;QD;PO
     Route: 048
     Dates: start: 20060516, end: 20060710
  5. REBETOL [Suspect]
     Indication: HEPATITIS C
     Dosage: 600 MG;QD;PO; 400 MG;QD;PO; 200 MG;QD;PO
     Route: 048
     Dates: start: 20060711, end: 20060724
  6. REBETOL [Suspect]
     Indication: HEPATITIS C
     Dosage: 600 MG;QD;PO; 400 MG;QD;PO; 200 MG;QD;PO
     Route: 048
     Dates: start: 20060725, end: 20060726

REACTIONS (7)
  - ABASIA [None]
  - AUTOIMMUNE DISORDER [None]
  - DYSURIA [None]
  - FALL [None]
  - HYPERTHYROIDISM [None]
  - MUSCULAR WEAKNESS [None]
  - MYELITIS TRANSVERSE [None]
